FAERS Safety Report 8934036 (Version 4)
Quarter: 2014Q3

REPORT INFORMATION
  Report Type: Spontaneous
  Country: US (occurrence: US)
  Receive Date: 20121129
  Receipt Date: 20140728
  Transmission Date: 20150326
  Serious: Yes (Hospitalization, Disabling, Other)
  Sender: FDA-Public Use
  Company Number: US-009507513-1211USA010849

PATIENT
  Sex: Female
  Weight: 66.98 kg

DRUGS (2)
  1. METOPROLOL [Concomitant]
     Active Substance: METOPROLOL
     Indication: CARDIAC DISORDER
     Dosage: UNK
     Dates: start: 200708, end: 200904
  2. NUVARING [Suspect]
     Active Substance: ETHINYL ESTRADIOL\ETONOGESTREL
     Indication: CONTRACEPTION
     Dosage: UNK
     Route: 067
     Dates: start: 200901, end: 200908

REACTIONS (24)
  - Chest pain [Unknown]
  - Haemoptysis [Unknown]
  - Hypertension [Unknown]
  - High frequency ablation [Recovered/Resolved]
  - Maternal exposure before pregnancy [Recovered/Resolved]
  - Ecchymosis [Unknown]
  - Vascular rupture [Unknown]
  - Pulmonary embolism [Unknown]
  - Atrial tachycardia [Recovered/Resolved]
  - Supraventricular tachycardia [Recovered/Resolved]
  - Angina pectoris [Unknown]
  - Cardiovascular disorder [Unknown]
  - Coagulopathy [Unknown]
  - Depression [Unknown]
  - Anxiety disorder [Not Recovered/Not Resolved]
  - Cardiac operation [Unknown]
  - Nodal arrhythmia [Recovered/Resolved]
  - Lung infiltration [Unknown]
  - Human papilloma virus test positive [Unknown]
  - Intervertebral disc protrusion [Unknown]
  - Major depression [Not Recovered/Not Resolved]
  - Suicidal ideation [Recovered/Resolved]
  - Protein S decreased [Unknown]
  - Fatigue [Unknown]

NARRATIVE: CASE EVENT DATE: 2009
